FAERS Safety Report 14612344 (Version 1)
Quarter: 2018Q1

REPORT INFORMATION
  Report Type: Spontaneous
  Country: ES (occurrence: ES)
  Receive Date: 20180308
  Receipt Date: 20180308
  Transmission Date: 20180509
  Serious: Yes (Other)
  Sender: FDA-Public Use
  Company Number: ES-BAYER-2018-037978

PATIENT
  Age: 48 Year
  Sex: Female

DRUGS (1)
  1. ACTIRA [Suspect]
     Active Substance: MOXIFLOXACIN HYDROCHLORIDE
     Indication: PHARYNGOTONSILLITIS
     Dosage: 400 MG, QD

REACTIONS (4)
  - Hypocalcaemia [Recovered/Resolved]
  - Paraesthesia [Recovered/Resolved]
  - Abdominal pain lower [Recovered/Resolved]
  - Urticaria [Recovered/Resolved]
